FAERS Safety Report 8174402-4 (Version None)
Quarter: 2012Q1

REPORT INFORMATION
  Report Type: 
  Country: None (occurrence: None)
  Receive Date: 20120229
  Receipt Date: 20120223
  Transmission Date: 20120608
  Serious: No
  Sender: FDA-Public Use
  Company Number: US-ELI_LILLY_AND_COMPANY-US201112005361

PATIENT
  Sex: Male

DRUGS (2)
  1. ADCIRCA [Suspect]
     Indication: PULMONARY ARTERIAL HYPERTENSION
     Dosage: UNK, UNKNOWN
  2. LETAIRIS [Concomitant]

REACTIONS (4)
  - PAIN [None]
  - ABDOMINAL DISCOMFORT [None]
  - FATIGUE [None]
  - VISION BLURRED [None]
